FAERS Safety Report 16900083 (Version 2)
Quarter: 2019Q4

REPORT INFORMATION
  Report Type: Spontaneous
  Country: AU (occurrence: AU)
  Receive Date: 20191009
  Receipt Date: 20191108
  Transmission Date: 20200122
  Serious: Yes (Other)
  Sender: FDA-Public Use
  Company Number: AU-JNJFOC-20190936913

PATIENT
  Age: 55 Year
  Sex: Male

DRUGS (20)
  1. PALIPERIDONE. [Suspect]
     Active Substance: PALIPERIDONE
     Indication: SCHIZOPHRENIA
     Route: 048
  2. PALIPERIDONE PALMITATE [Suspect]
     Active Substance: PALIPERIDONE PALMITATE
     Indication: SCHIZOPHRENIA
     Route: 030
  3. ZUCLOPENTHIXOL [Suspect]
     Active Substance: ZUCLOPENTHIXOL
     Indication: PRODUCT USED FOR UNKNOWN INDICATION
     Route: 048
  4. CHLORPROMAZINE HYDROCHLORIDE. [Suspect]
     Active Substance: CHLORPROMAZINE HYDROCHLORIDE
     Indication: PRODUCT USED FOR UNKNOWN INDICATION
     Route: 065
  5. ATORVASTATIN [Concomitant]
     Active Substance: ATORVASTATIN
     Route: 048
  6. CLOZARIL [Suspect]
     Active Substance: CLOZAPINE
     Route: 065
  7. DAPAGLIFLOZIN. [Concomitant]
     Active Substance: DAPAGLIFLOZIN
  8. LORAZEPAM. [Concomitant]
     Active Substance: LORAZEPAM
     Dosage: 1-2MG FOUR-HOURLY PRN ORAL UP TO 6MG DAILY
  9. CLOZARIL [Suspect]
     Active Substance: CLOZAPINE
     Indication: SCHIZOPHRENIA
     Route: 065
     Dates: start: 20091215
  10. METFORMIN [Concomitant]
     Active Substance: METFORMIN HYDROCHLORIDE
     Route: 048
  11. CELEBREX [Concomitant]
     Active Substance: CELECOXIB
  12. ASENAPINE. [Suspect]
     Active Substance: ASENAPINE
     Indication: PRODUCT USED FOR UNKNOWN INDICATION
     Route: 065
  13. OLANZAPINE. [Suspect]
     Active Substance: OLANZAPINE
     Indication: PRODUCT USED FOR UNKNOWN INDICATION
     Route: 048
  14. OSTELIN VITAMIN D [Concomitant]
     Active Substance: CHOLECALCIFEROL
     Dosage: 1 CAPSULE
     Route: 048
  15. SODIUM VALPROATE [Concomitant]
     Active Substance: VALPROATE SODIUM
  16. PANTOPRAZOLE [Concomitant]
     Active Substance: PANTOPRAZOLE
     Route: 048
  17. ZUCLOPENTHIXOL [Suspect]
     Active Substance: ZUCLOPENTHIXOL
     Indication: PRODUCT USED FOR UNKNOWN INDICATION
     Route: 030
  18. OLANZAPINE. [Suspect]
     Active Substance: OLANZAPINE
     Indication: PRODUCT USED FOR UNKNOWN INDICATION
     Route: 030
  19. METFORMIN [Concomitant]
     Active Substance: METFORMIN HYDROCHLORIDE
     Route: 048
  20. BENZATROPINE [Concomitant]
     Active Substance: BENZTROPINE
     Dosage: 1-2 MG SIX-HOURLY PRN ORAL UP TO 6MG DAILY
     Route: 048

REACTIONS (6)
  - Mitral valve incompetence [Unknown]
  - Pulmonary valve incompetence [Unknown]
  - Drug ineffective [Unknown]
  - Tricuspid valve incompetence [Unknown]
  - Mental impairment [Unknown]
  - Myocarditis [Unknown]
